FAERS Safety Report 21980898 (Version 1)
Quarter: 2023Q1

REPORT INFORMATION
  Report Type: Spontaneous
  Country: US (occurrence: US)
  Receive Date: 20230211
  Receipt Date: 20230211
  Transmission Date: 20230417
  Serious: No
  Sender: FDA-Public Use
  Company Number: US-AMGEN-USASP2023023487

PATIENT
  Age: 29 Year
  Sex: Female

DRUGS (8)
  1. AIMOVIG [Suspect]
     Active Substance: ERENUMAB-AOOE
     Indication: Migraine
     Dosage: 140 MILLIGRAM, QMO
     Route: 058
  2. NIKKI [Concomitant]
     Active Substance: DROSPIRENONE\ETHINYL ESTRADIOL
  3. SPIRONOLACTONE [Concomitant]
     Active Substance: SPIRONOLACTONE
     Dosage: 100 MILLIGRAM
  4. RIZATRIPTAN [Concomitant]
     Active Substance: RIZATRIPTAN
  5. ACYCLOVIR [Concomitant]
     Active Substance: ACYCLOVIR
     Dosage: 1 GRAM
  6. PROPRANOLOL [Concomitant]
     Active Substance: PROPRANOLOL HYDROCHLORIDE
     Dosage: 20 MILLIGRAM
  7. BUPROPION [Concomitant]
     Active Substance: BUPROPION
     Dosage: 300 MILLIGRAM
  8. TRIAZOLAM [Concomitant]
     Active Substance: TRIAZOLAM
     Dosage: 2.5 MILLIGRAM

REACTIONS (3)
  - Therapeutic product effect incomplete [Not Recovered/Not Resolved]
  - Injection site pain [Not Recovered/Not Resolved]
  - Injection site urticaria [Recovered/Resolved]

NARRATIVE: CASE EVENT DATE: 20230131
